FAERS Safety Report 23396421 (Version 1)
Quarter: 2024Q1

REPORT INFORMATION
  Report Type: Spontaneous
  Country: US (occurrence: US)
  Receive Date: 20240112
  Receipt Date: 20240112
  Transmission Date: 20240409
  Serious: Yes (Life-Threatening, Hospitalization)
  Sender: FDA-Public Use
  Company Number: US-AMGEN-USASP2024001061

PATIENT
  Age: 34 Year
  Sex: Male

DRUGS (1)
  1. INFLIXIMAB [Suspect]
     Active Substance: INFLIXIMAB
     Indication: Colitis ulcerative
     Dosage: UNK
     Route: 065

REACTIONS (11)
  - Hydrothorax [Recovering/Resolving]
  - Leukocytosis [Unknown]
  - Large intestine polyp [Unknown]
  - Lactic acidosis [Recovering/Resolving]
  - Ascites [Unknown]
  - Large intestine perforation [Unknown]
  - Acute kidney injury [Recovering/Resolving]
  - Cardio-respiratory arrest [Unknown]
  - Shock [Recovering/Resolving]
  - Epstein-Barr virus infection [Unknown]
  - Haemoglobin decreased [Unknown]
